FAERS Safety Report 7949932-8 (Version None)
Quarter: 2011Q4

REPORT INFORMATION
  Report Type: 
  Country: None (occurrence: None)
  Receive Date: 20111130
  Receipt Date: 20111122
  Transmission Date: 20120403
  Serious: Yes (Hospitalization, Other)
  Sender: FDA-Public Use
  Company Number: US-BRISTOL-MYERS SQUIBB COMPANY-16243883

PATIENT
  Age: 66 Year
  Sex: Female
  Weight: 107 kg

DRUGS (21)
  1. VITAMIN D [Concomitant]
     Dosage: 1DF=1000 UNITS
     Route: 048
  2. IPILIMUMAB [Suspect]
     Indication: MALIGNANT MELANOMA
     Dosage: FREQ:Q3WK*4.INTERRUPTED:26OCT2011.
     Route: 042
     Dates: start: 20110914
  3. COLACE [Concomitant]
     Dosage: CAPS
     Route: 048
  4. LISINOPRIL AND HYDROCHLOROTHIAZIDE [Concomitant]
     Dosage: 1DF=20MG/25MG TABS.
     Route: 048
  5. ALPRAZOLAM [Concomitant]
     Dosage: TABS
     Route: 048
  6. HYDROCORTISONE [Concomitant]
     Dosage: 120 TABS
     Route: 048
  7. LIDOCAINE [Concomitant]
  8. PROCHLORPERAZINE MALEATE [Concomitant]
     Indication: NAUSEA
     Dosage: PRN
     Route: 048
  9. TRIAMCINOLONE [Concomitant]
  10. CLONAZEPAM [Concomitant]
     Dosage: 1TABS.
     Route: 048
  11. GABAPENTIN [Concomitant]
     Route: 048
  12. CALCIUM + VITAMIN D [Concomitant]
     Dosage: VITD:1500MG/200 IU, TOTAL :600MG.
     Route: 048
  13. MULTI-VITAMINS [Concomitant]
     Dosage: 1 TABS.
     Route: 048
  14. OXYCODONE HCL [Concomitant]
     Indication: PAIN
     Dosage: PRN
     Route: 048
  15. AVASTIN [Suspect]
     Indication: MALIGNANT MELANOMA
     Dosage: INTERRUPTED:05OCT2011.
     Route: 042
     Dates: start: 20110914
  16. CODEINE SULFATE [Concomitant]
     Dosage: (300MG-30MG TAB);1 TAB,FREQ:PRN.
     Route: 048
  17. ACETAMINOPHEN [Concomitant]
     Dosage: Q8H PRN
     Route: 048
  18. ACETAMINOPHEN [Concomitant]
  19. SERTRALINE HYDROCHLORIDE [Concomitant]
     Dosage: TABS
     Route: 048
  20. VERAPAMIL [Concomitant]
     Dosage: SUSTAINED RELEASE, TABS.
     Route: 048
  21. LIDOCAINE + PRILOCAINE [Concomitant]
     Dosage: LIDOCAINE5% PATCH TRANDERMAL QD

REACTIONS (3)
  - HYPOPHYSITIS [None]
  - DYSPNOEA [None]
  - DIARRHOEA [None]
